FAERS Safety Report 11165691 (Version 2)
Quarter: 2015Q3

REPORT INFORMATION
  Report Type: Spontaneous
  Country: CA (occurrence: CA)
  Receive Date: 20150604
  Receipt Date: 20150722
  Transmission Date: 20151125
  Serious: Yes (Other)
  Sender: FDA-Public Use
  Company Number: CA-TEVA-568157USA

PATIENT
  Age: 22 Year
  Sex: Female
  Weight: 65 kg

DRUGS (3)
  1. TRISENOX [Suspect]
     Active Substance: ARSENIC TRIOXIDE
     Route: 042
     Dates: start: 20150410, end: 20150513
  2. TRETINOIN. [Concomitant]
     Active Substance: TRETINOIN
     Dosage: DAILY DOSE NOT REPORTED (FREQUENCY NOT REPORTED)
     Route: 048
  3. TRISENOX [Suspect]
     Active Substance: ARSENIC TRIOXIDE
     Indication: ACUTE PROMYELOCYTIC LEUKAEMIA
     Dosage: 9.8 MILLIGRAM DAILY;
     Route: 042
     Dates: start: 20150402, end: 20150406

REACTIONS (1)
  - Hepatotoxicity [Recovered/Resolved]

NARRATIVE: CASE EVENT DATE: 20150406
